FAERS Safety Report 8544910-2 (Version None)
Quarter: 2012Q3

REPORT INFORMATION
  Report Type: 
  Country: None (occurrence: None)
  Receive Date: 20120727
  Receipt Date: 20120724
  Transmission Date: 20120928
  Serious: Yes (Hospitalization)
  Sender: FDA-Public Use
  Company Number: IT-ROCHE-1092485

PATIENT
  Sex: Female

DRUGS (3)
  1. FLUIFORT [Suspect]
     Indication: BRONCHITIS
     Route: 048
     Dates: start: 20120626, end: 20120709
  2. ROCEPHIN [Suspect]
     Indication: BRONCHITIS
     Route: 030
     Dates: start: 20120626, end: 20120709
  3. AVELOX [Concomitant]
     Indication: BRONCHITIS
     Route: 048
     Dates: start: 20120709, end: 20120711

REACTIONS (3)
  - URTICARIA [None]
  - TREMOR [None]
  - PRURITUS [None]
